FAERS Safety Report 9202778 (Version 1)
Quarter: 2013Q2

REPORT INFORMATION
  Report Type: Spontaneous
  Country: GB (occurrence: GB)
  Receive Date: 20130401
  Receipt Date: 20130401
  Transmission Date: 20140414
  Serious: Yes (Other)
  Sender: FDA-Public Use
  Company Number: GB-MYLANLABS-2013S1006423

PATIENT
  Age: 32 Year
  Sex: Male
  Weight: 87 kg

DRUGS (1)
  1. VENLAFAXINE [Suspect]
     Indication: INSOMNIA
     Dates: start: 2009

REACTIONS (1)
  - Periodic limb movement disorder [Recovered/Resolved]
